FAERS Safety Report 4411186-7 (Version None)
Quarter: 2004Q3

REPORT INFORMATION
  Report Type: 
  Country: None (occurrence: None)
  Receive Date: 20040727
  Receipt Date: 20040708
  Transmission Date: 20050211
  Serious: Yes (Life-Threatening)
  Sender: FDA-Public Use
  Company Number: WAES 0407MEX00015

PATIENT
  Age: 43 Year

DRUGS (3)
  1. CRIXIVAN [Suspect]
     Indication: ACQUIRED IMMUNODEFICIENCY SYNDROME
     Dosage: PO
     Route: 048
  2. RITONAVIR [Concomitant]
  3. ZIDOVUDINE [Concomitant]

REACTIONS (1)
  - PULMONARY EMBOLISM [None]
